FAERS Safety Report 4430905-7 (Version None)
Quarter: 2004Q3

REPORT INFORMATION
  Report Type: 
  Country: None (occurrence: None)
  Receive Date: 20040823
  Receipt Date: 20040810
  Transmission Date: 20050211
  Serious: Yes (Hospitalization)
  Sender: FDA-Public Use
  Company Number: US-ROCHE-377348

PATIENT
  Age: 62 Year
  Sex: Male
  Weight: 63 kg

DRUGS (5)
  1. CAPECITABINE [Suspect]
     Route: 065
     Dates: start: 20040219
  2. ENZASTAURIN [Suspect]
     Route: 048
     Dates: start: 20040205
  3. IBUPROFEN [Concomitant]
     Indication: ABDOMINAL PAIN
     Dates: start: 20031115
  4. DARBEPOETIN ALFA [Concomitant]
     Indication: ANAEMIA
     Dates: start: 20040422
  5. FERROUS SULFATE TAB [Concomitant]
     Indication: ANAEMIA
     Dates: start: 20040422

REACTIONS (8)
  - ABDOMINAL PAIN [None]
  - HAEMATEMESIS [None]
  - HAEMATOCRIT DECREASED [None]
  - HEPATIC ENZYME INCREASED [None]
  - HYPOTENSION [None]
  - MELAENA [None]
  - NEOPLASM PROGRESSION [None]
  - TACHYCARDIA [None]
